FAERS Safety Report 7676583-5 (Version None)
Quarter: 2011Q3

REPORT INFORMATION
  Report Type: 
  Country: None (occurrence: None)
  Receive Date: 20110805
  Receipt Date: 20110721
  Transmission Date: 20111222
  Serious: Yes (Hospitalization)
  Sender: FDA-Public Use
  Company Number: 2011MA009287

PATIENT
  Age: 72 Year
  Sex: Male

DRUGS (21)
  1. VANCOMYCIN [Suspect]
     Indication: INFECTION
  2. DOCUSATE [Concomitant]
  3. ALENDRONATE SODIUM [Concomitant]
  4. ASPIRIN [Concomitant]
  5. ALLOPURINOL [Concomitant]
  6. [SPAGHULA HUSK [Concomitant]
  7. ALBUTEROL [Concomitant]
  8. AMITRIPTYLINE HCL [Concomitant]
  9. PRAVASTATIN [Concomitant]
  10. RANITIDINE [Concomitant]
  11. DOXAZOSIN MESYLATE [Concomitant]
  12. CYCLOSPORINE [Concomitant]
  13. NYSTATIN [Concomitant]
  14. DUTASERIDE [Concomitant]
  15. TAMSULOSIN HCL [Concomitant]
  16. PREDNISOLONE [Concomitant]
  17. RIFAMPIN [Suspect]
     Indication: INFECTION
     Dosage: 300 MG;BID;
  18. COTRIMOXAZOLE (NO PREF. NAME) [Suspect]
     Indication: INFECTION
  19. CALCIUM CARBONATE [Concomitant]
  20. BUDESONIDE/FORMOTEROL [Concomitant]
  21. ENOXAPARIN [Concomitant]

REACTIONS (5)
  - SERONEGATIVE ARTHRITIS [None]
  - SPINAL COLUMN STENOSIS [None]
  - INTERVERTEBRAL DISC PROTRUSION [None]
  - PERIPHERAL SENSORIMOTOR NEUROPATHY [None]
  - NO THERAPEUTIC RESPONSE [None]
